FAERS Safety Report 15831283 (Version 1)
Quarter: 2018Q4

REPORT INFORMATION
  Report Type: Spontaneous
  Country: US (occurrence: US)
  Receive Date: 20181219
  Receipt Date: 20181219
  Transmission Date: 20190205
  Serious: Yes (Life-Threatening, Hospitalization, Disabling)
  Sender: FDA-Public Use
  Company Number: None

PATIENT

DRUGS (8)
  1. SPIRIVA RESPIMAT [Suspect]
     Active Substance: TIOTROPIUM BROMIDE
     Indication: CHRONIC OBSTRUCTIVE PULMONARY DISEASE
     Dosage: ?          QUANTITY:2 PUFFS;OTHER FREQUENCY:1 DAILY;?
     Route: 048
     Dates: start: 20180320, end: 20180525
  2. AMLODRONE 200MG 1-DAILY [Concomitant]
  3. LOSARTAN POTASSIUM 12.5 MS BEDTIME [Concomitant]
  4. TORSEMIDE 20MG 1-DAILY [Concomitant]
  5. ASPIRIN 81MG DAILY [Suspect]
     Active Substance: ASPIRIN
  6. ZOCOR 10MG 1-DAY BEDTIME [Concomitant]
  7. POLYTHLETE GLYCOL [Concomitant]
  8. METOPROLOL SUCCINATE 50MG 1-DAILY [Concomitant]

REACTIONS (2)
  - Pneumonia [None]
  - Myocardial infarction [None]

NARRATIVE: CASE EVENT DATE: 20180327
